FAERS Safety Report 9241178 (Version 1)
Quarter: 2013Q1

REPORT INFORMATION
  Report Type: Spontaneous
  Country: US (occurrence: None)
  Receive Date: 20121120
  Receipt Date: 20121120
  Transmission Date: 20140127
  Serious: No
  Sender: FDA-Public Use
  Company Number: 1000039097

PATIENT
  Age: 34 Year
  Sex: Female

DRUGS (4)
  1. VIIBRYD [Suspect]
     Indication: AFFECTIVE DISORDER
     Dosage: 1 IN 1 D
     Route: 048
     Dates: start: 20120906, end: 20120912
  2. VIIBRYD [Suspect]
     Indication: AFFECTIVE DISORDER
     Dosage: (30 MG, 1 IN 1 D)
     Dates: start: 20120920, end: 20120925
  3. TRILEPTAL (OXCARBAZEPINE) (OXCARBAZEPINE) [Concomitant]
  4. ZOLOFT (SERTRALINE HYDROCHLORIDE) (SERTRALINE HYDROCHLORIDE) [Concomitant]

REACTIONS (2)
  - Alopecia [None]
  - Off label use [None]
